FAERS Safety Report 11911217 (Version 2)
Quarter: 2016Q1

REPORT INFORMATION
  Report Type: Report from Study
  Country: US (occurrence: US)
  Receive Date: 20160112
  Receipt Date: 20160331
  Transmission Date: 20160526
  Serious: No
  Sender: FDA-Public Use
  Company Number: GXBR2015US002809

PATIENT
  Sex: Female
  Weight: 27.21 kg

DRUGS (1)
  1. OMNITROPE [Suspect]
     Active Substance: SOMATROPIN
     Indication: BODY HEIGHT BELOW NORMAL
     Dosage: 1.4 MG, 6 DAYS A WEEK
     Route: 065
     Dates: start: 200407

REACTIONS (3)
  - Drug administered in wrong device [Recovered/Resolved]
  - Headache [Unknown]
  - Incorrect dose administered by device [Recovered/Resolved]
